FAERS Safety Report 22215895 (Version 7)
Quarter: 2025Q2

REPORT INFORMATION
  Report Type: Report from Study
  Country: US (occurrence: US)
  Receive Date: 20230417
  Receipt Date: 20250616
  Transmission Date: 20250716
  Serious: Yes (Other)
  Sender: TAKEDA
  Company Number: US-TAKEDA-2023TUS037758

PATIENT
  Sex: Female
  Weight: 156 kg

DRUGS (64)
  1. HUMAN IMMUNOGLOBULIN G [Suspect]
     Active Substance: HUMAN IMMUNOGLOBULIN G
     Indication: IgG deficiency
     Dosage: 15 GRAM, Q2WEEKS
     Dates: start: 20230226
  2. HUMAN IMMUNOGLOBULIN G [Suspect]
     Active Substance: HUMAN IMMUNOGLOBULIN G
     Indication: Immunodeficiency common variable
     Dosage: 17 GRAM, Q2WEEKS
     Dates: end: 20230524
  3. BETAMETHASONE VALERATE [Concomitant]
     Active Substance: BETAMETHASONE VALERATE
  4. ARMOUR THYROID [Concomitant]
     Active Substance: THYROID, PORCINE
  5. METOPROLOL SUCCINATE [Concomitant]
     Active Substance: METOPROLOL SUCCINATE
  6. DULOXETINE HYDROCHLORIDE [Concomitant]
     Active Substance: DULOXETINE HYDROCHLORIDE
  7. ROSUVASTATIN CALCIUM [Concomitant]
     Active Substance: ROSUVASTATIN CALCIUM
  8. HERBALS\TURMERIC [Concomitant]
     Active Substance: HERBALS\TURMERIC
  9. BIOTIN [Concomitant]
     Active Substance: BIOTIN
  10. TRIAMCINOLONE ACETONIDE [Concomitant]
     Active Substance: TRIAMCINOLONE ACETONIDE
  11. LYRICA [Concomitant]
     Active Substance: PREGABALIN
  12. CLINDAMYCIN AND BENZOYL PEROXIDE [Concomitant]
     Active Substance: BENZOYL PEROXIDE\CLINDAMYCIN PHOSPHATE
  13. DOCUSATE SODIUM [Concomitant]
     Active Substance: DOCUSATE SODIUM
  14. FLUOCINOLONE ACETONIDE [Concomitant]
     Active Substance: FLUOCINOLONE ACETONIDE
  15. CLOBETASOL [Concomitant]
     Active Substance: CLOBETASOL
  16. BUPROPION HYDROCHLORIDE [Concomitant]
     Active Substance: BUPROPION HYDROCHLORIDE
  17. SINGULAIR [Concomitant]
     Active Substance: MONTELUKAST SODIUM
  18. VITAMIN D3 [Concomitant]
     Active Substance: CHOLECALCIFEROL
  19. FAMOTIDINE [Concomitant]
     Active Substance: FAMOTIDINE
  20. URSODIOL [Concomitant]
     Active Substance: URSODIOL
  21. XARELTO [Concomitant]
     Active Substance: RIVAROXABAN
  22. BETHANECHOL CHLORIDE [Concomitant]
     Active Substance: BETHANECHOL CHLORIDE
  23. BROVANA [Concomitant]
     Active Substance: ARFORMOTEROL TARTRATE
  24. VITAMIN C [Concomitant]
     Active Substance: ASCORBIC ACID
  25. BUDESONIDE [Concomitant]
     Active Substance: BUDESONIDE
  26. ACETAMINOPHEN [Concomitant]
     Active Substance: ACETAMINOPHEN
  27. VITAMIN B COMPLEX [Concomitant]
     Active Substance: CYANOCOBALAMIN\DEXPANTHENOL\NIACINAMIDE\PYRIDOXINE HYDROCHLORIDE\RIBOFLAVIN 5^-PHOSPHATE SODIUM\THIA
  28. MAGNESIUM [Concomitant]
     Active Substance: MAGNESIUM
  29. POTASSIUM CHLORIDE [Concomitant]
     Active Substance: POTASSIUM CHLORIDE
  30. BENADRYL [Concomitant]
     Active Substance: DIPHENHYDRAMINE HYDROCHLORIDE
  31. VOLTAREN [Concomitant]
     Active Substance: DICLOFENAC SODIUM
  32. MORPHINE SULFATE [Concomitant]
     Active Substance: MORPHINE SULFATE
  33. BREZTRI [Concomitant]
     Active Substance: BUDESONIDE\FORMOTEROL\GLYCOPYRROLATE
  34. TORSEMIDE [Concomitant]
     Active Substance: TORSEMIDE
  35. PANTOPRAZOLE SODIUM [Concomitant]
     Active Substance: PANTOPRAZOLE SODIUM
  36. FOLIC ACID [Concomitant]
     Active Substance: FOLIC ACID
  37. TESSALON [Concomitant]
     Active Substance: BENZONATATE
  38. EPIPEN [Concomitant]
     Active Substance: EPINEPHRINE
  39. OXYBUTYNIN CHLORIDE [Concomitant]
     Active Substance: OXYBUTYNIN CHLORIDE
  40. CALCIPOTRIENE [Concomitant]
     Active Substance: CALCIPOTRIENE
  41. IPRATROPIUM BROMIDE [Concomitant]
     Active Substance: IPRATROPIUM BROMIDE
  42. PROTONIX [Concomitant]
     Active Substance: PANTOPRAZOLE SODIUM
  43. LIDOCAINE [Concomitant]
     Active Substance: LIDOCAINE
  44. ADVAIR HFA [Concomitant]
     Active Substance: FLUTICASONE PROPIONATE\SALMETEROL XINAFOATE
  45. EPINEPHRINE [Concomitant]
     Active Substance: EPINEPHRINE
  46. OXYCODONE HYDROCHLORIDE [Concomitant]
     Active Substance: OXYCODONE HYDROCHLORIDE
  47. METHOCARBAMOL [Concomitant]
     Active Substance: METHOCARBAMOL
  48. FENTANYL [Concomitant]
     Active Substance: FENTANYL
  49. PREGABALIN [Concomitant]
     Active Substance: PREGABALIN
  50. BENZONATATE [Concomitant]
     Active Substance: BENZONATATE
  51. FLUTICASONE PROPIONATE [Concomitant]
     Active Substance: FLUTICASONE PROPIONATE
  52. KAPSPARGO [Concomitant]
     Active Substance: METOPROLOL SUCCINATE
  53. TRAZODONE HCL [Concomitant]
     Active Substance: TRAZODONE HYDROCHLORIDE
  54. MONTELUKAST SODIUM [Concomitant]
     Active Substance: MONTELUKAST SODIUM
  55. DIPHENHYDRAMINE HYDROCHLORIDE [Concomitant]
     Active Substance: DIPHENHYDRAMINE HYDROCHLORIDE
  56. MOVANTIK [Concomitant]
     Active Substance: NALOXEGOL OXALATE
  57. NYSTATIN [Concomitant]
     Active Substance: NYSTATIN
  58. METOPROLOL TARTRATE [Concomitant]
     Active Substance: METOPROLOL TARTRATE
  59. ASMANEX HFA [Concomitant]
     Active Substance: MOMETASONE FUROATE
  60. ALBUTEROL SULFATE [Concomitant]
     Active Substance: ALBUTEROL SULFATE
  61. POTASSIUM [Concomitant]
     Active Substance: POTASSIUM
  62. IRON [Concomitant]
     Active Substance: IRON
  63. Probiotic baby [Concomitant]
  64. CALCIUM\CHOLECALCIFEROL [Concomitant]
     Active Substance: CALCIUM\CHOLECALCIFEROL

REACTIONS (20)
  - Pneumonia [Unknown]
  - Pertussis [Unknown]
  - Ear infection [Unknown]
  - Inappropriate schedule of product administration [Unknown]
  - Infected cyst [Recovered/Resolved]
  - Cyst rupture [Unknown]
  - Fungal skin infection [Recovered/Resolved]
  - Infusion site discharge [Unknown]
  - Urinary tract infection [Recovered/Resolved]
  - Vaginal infection [Recovered/Resolved]
  - Fungal infection [Unknown]
  - Respiratory tract infection [Unknown]
  - Illness [Unknown]
  - Food allergy [Unknown]
  - Bladder disorder [Unknown]
  - Sinusitis [Recovered/Resolved]
  - Somnolence [Recovered/Resolved]
  - Infusion site erythema [Recovered/Resolved]
  - Malaise [Recovering/Resolving]
  - Urticaria [Unknown]
